FAERS Safety Report 6476728-9 (Version None)
Quarter: 2009Q4

REPORT INFORMATION
  Report Type: 
  Country: None (occurrence: None)
  Receive Date: 20091207
  Receipt Date: 20091123
  Transmission Date: 20100525
  Serious: Yes (Hospitalization, Other)
  Sender: FDA-Public Use
  Company Number: PHHY2009GB51780

PATIENT
  Sex: Female

DRUGS (1)
  1. METOPROLOL [Suspect]
     Indication: ANGINA PECTORIS
     Dosage: 50 MG, 1/4 TABLETS 3 TIMES DAILY
     Route: 048

REACTIONS (16)
  - ABASIA [None]
  - ANGINA PECTORIS [None]
  - BLOOD PRESSURE DECREASED [None]
  - CARDIOVASCULAR DISORDER [None]
  - CHEST PAIN [None]
  - DYSKINESIA [None]
  - DYSPNOEA [None]
  - FALL [None]
  - FEELING ABNORMAL [None]
  - GENERAL PHYSICAL HEALTH DETERIORATION [None]
  - HEART RATE DECREASED [None]
  - LOSS OF CONSCIOUSNESS [None]
  - MALAISE [None]
  - MOVEMENT DISORDER [None]
  - PARAESTHESIA [None]
  - VISUAL IMPAIRMENT [None]
